FAERS Safety Report 5055509-7 (Version None)
Quarter: 2006Q3

REPORT INFORMATION
  Report Type: 
  Country: None (occurrence: None)
  Receive Date: 20060717
  Receipt Date: 20060717
  Transmission Date: 20061208
  Serious: Yes (Other)
  Sender: FDA-Public Use
  Company Number: None

PATIENT
  Sex: Female
  Weight: 49.8957 kg

DRUGS (3)
  1. NEVANAC [Suspect]
     Indication: OFF LABEL USE
     Dosage: ONE DROP   TID   LEFT EYE
     Dates: start: 20051130, end: 20051217
  2. NEVANAC [Suspect]
     Indication: PAIN MANAGEMENT
     Dosage: ONE DROP   TID   LEFT EYE
     Dates: start: 20051130, end: 20051217
  3. NEVANAC [Suspect]
     Indication: SURGERY
     Dosage: ONE DROP   TID   LEFT EYE
     Dates: start: 20051130, end: 20051217

REACTIONS (2)
  - CORNEAL EPITHELIUM DEFECT [None]
  - EYE OPERATION COMPLICATION [None]
